FAERS Safety Report 9190620 (Version 1)
Quarter: 2013Q1

REPORT INFORMATION
  Report Type: Spontaneous
  Country: US (occurrence: None)
  Receive Date: 20120703
  Receipt Date: 20120703
  Transmission Date: 20140127
  Serious: Yes (Other)
  Sender: FDA-Public Use
  Company Number: PHEH2012US007658

PATIENT
  Age: 44 Year
  Sex: Male
  Weight: 83.9 kg

DRUGS (3)
  1. GILENYA (FTY)CAPSULE,0.5MG [Suspect]
     Indication: RELAPSING-REMITTING MULTIPLE SCLEROSIS
     Route: 048
     Dates: start: 20110502, end: 20120123
  2. MULTIVITAMINS(ASCORBIC ACID, ERGOCALCIFEROL, FOLIC ACID, NICOTINAMIDE, PANTHENOL, RETINOL, RIBOFLAVIN, THIAMINE HYDROCHLORIDE) [Concomitant]
  3. FISH OIL (FISH OIL) [Concomitant]

REACTIONS (2)
  - Hepatic enzyme increased [None]
  - Gamma-glutamyltransferase increased [None]
